FAERS Safety Report 11580735 (Version 1)
Quarter: 2015Q3

REPORT INFORMATION
  Report Type: Spontaneous
  Country: BR (occurrence: BR)
  Receive Date: 20150930
  Receipt Date: 20150930
  Transmission Date: 20151125
  Serious: Yes (Hospitalization, Other)
  Sender: FDA-Public Use
  Company Number: BR-AMGEN-BRASP2015100867

PATIENT
  Age: 52 Year
  Sex: Female
  Weight: 70 kg

DRUGS (9)
  1. LEFLUNOMIDE. [Concomitant]
     Active Substance: LEFLUNOMIDE
     Indication: RHEUMATOID ARTHRITIS
     Dosage: ONE TABLET (20 MG), DAILY
  2. METFORMIN [Concomitant]
     Active Substance: METFORMIN HYDROCHLORIDE
     Indication: DIABETES MELLITUS
     Dosage: UNSPECIFIED DOSE, 3X/DAY
  3. COMPAZ [Concomitant]
     Indication: SLEEP DISORDER THERAPY
     Dosage: ONE TABLET (5 MG), DAILY
  4. FORMOTEROL [Concomitant]
     Active Substance: FORMOTEROL
     Dosage: STRENGTH 12UG
  5. REUQUINOL [Concomitant]
     Active Substance: HYDROXYCHLOROQUINE SULFATE
     Indication: RHEUMATOID ARTHRITIS
     Dosage: ONE TABLET (400 MG), 1X/DAY (AT NIGHT)
  6. HYDROCHLOROTHIAZIDE. [Concomitant]
     Active Substance: HYDROCHLOROTHIAZIDE
     Indication: BLOOD PRESSURE ABNORMAL
     Dosage: ONE TABLET (25 MG), DAILY
  7. AMITRIPTYLINE HYDROCHLORIDE. [Concomitant]
     Active Substance: AMITRIPTYLINE HYDROCHLORIDE
     Indication: SLEEP DISORDER THERAPY
     Dosage: ONE TABLET (25, UNSPECIFIED UNIT), DAILY
  8. BUDESONIDE. [Concomitant]
     Active Substance: BUDESONIDE
     Dosage: STRENGTH 400UG
  9. ENBREL [Suspect]
     Active Substance: ETANERCEPT
     Indication: RHEUMATOID ARTHRITIS
     Dosage: 50 MG, ONCE WEEKLY
     Route: 058
     Dates: start: 201401

REACTIONS (5)
  - Abasia [Unknown]
  - Osteoarthritis [Not Recovered/Not Resolved]
  - Joint swelling [Unknown]
  - Joint injury [Unknown]
  - Drug ineffective [Not Recovered/Not Resolved]
